FAERS Safety Report 25147375 (Version 3)
Quarter: 2025Q2

REPORT INFORMATION
  Report Type: Spontaneous
  Country: US (occurrence: US)
  Receive Date: 20250401
  Receipt Date: 20250609
  Transmission Date: 20250717
  Serious: No
  Sender: AMGEN
  Company Number: US-AMGEN-USASP2025063112

PATIENT
  Age: 54 Year
  Sex: Male

DRUGS (5)
  1. OTEZLA [Suspect]
     Active Substance: APREMILAST
     Indication: Rheumatoid arthritis
     Dosage: 30 MILLIGRAM, BID
     Route: 048
     Dates: start: 20250329
  2. OTEZLA [Suspect]
     Active Substance: APREMILAST
     Indication: Off label use
     Dosage: 30 MILLIGRAM, BID
     Route: 048
  3. AMPHETAMINE [Concomitant]
     Active Substance: AMPHETAMINE
  4. DEXTROAMPHETAMINE [Concomitant]
     Active Substance: DEXTROAMPHETAMINE
  5. HYDROCHLOROTHIAZIDE [Concomitant]
     Active Substance: HYDROCHLOROTHIAZIDE

REACTIONS (4)
  - Pain [Unknown]
  - Product dose omission issue [Unknown]
  - Therapy non-responder [Unknown]
  - Off label use [Unknown]

NARRATIVE: CASE EVENT DATE: 20250101
